FAERS Safety Report 17070646 (Version 1)
Quarter: 2019Q4

REPORT INFORMATION
  Report Type: Spontaneous
  Country: AT (occurrence: AT)
  Receive Date: 20191125
  Receipt Date: 20191125
  Transmission Date: 20200122
  Serious: Yes (Other)
  Sender: FDA-Public Use
  Company Number: AT-PFIZER INC-2019433496

PATIENT
  Age: 53 Year
  Sex: Male

DRUGS (3)
  1. IFOSFAMIDE. [Suspect]
     Active Substance: IFOSFAMIDE
     Indication: OSTEOSARCOMA
     Dosage: 3000 MG/M2, CYCLIC (6 CYCLES, WITH CYCLE 2 AND CYCLE 5)
     Route: 065
     Dates: start: 20181012, end: 20190309
  2. ETOPOSIDE. [Suspect]
     Active Substance: ETOPOSIDE
     Indication: OSTEOSARCOMA
     Dosage: 150 MG/M2, CYCLIC (6 CYCLES)
     Route: 065
     Dates: start: 20181012, end: 20190309
  3. CARBOPLATIN. [Suspect]
     Active Substance: CARBOPLATIN
     Indication: OSTEOSARCOMA
     Dosage: 300 MG/M2, CYCLIC (6 CYCLES)
     Route: 065
     Dates: start: 20181012, end: 20190309

REACTIONS (5)
  - Metastases to lung [Unknown]
  - Neoplasm progression [Unknown]
  - Off label use [Unknown]
  - Pelvic pain [Unknown]
  - Product use in unapproved indication [Unknown]

NARRATIVE: CASE EVENT DATE: 20181012
